FAERS Safety Report 10233344 (Version 3)
Quarter: 2014Q3

REPORT INFORMATION
  Report Type: Spontaneous
  Country: US (occurrence: US)
  Receive Date: 20140612
  Receipt Date: 20140801
  Transmission Date: 20150326
  Serious: Yes (Other)
  Sender: FDA-Public Use
  Company Number: US-PFIZER INC-2014157904

PATIENT
  Age: 69 Year
  Sex: Male

DRUGS (5)
  1. CARVEDILOL. [Concomitant]
     Active Substance: CARVEDILOL
     Indication: SUPRAVENTRICULAR TACHYCARDIA
     Dosage: 6.25 MG, 2X/DAY
     Route: 048
     Dates: start: 2012
  2. VFEND [Suspect]
     Active Substance: VORICONAZOLE
     Dosage: 200 MG, 2X/DAY (ATLEAST 1 YEAR)
     Route: 048
     Dates: start: 20131107
  3. PAROXETINE [Concomitant]
     Active Substance: PAROXETINE\PAROXETINE HYDROCHLORIDE
     Indication: DEPRESSION
     Dosage: 30 MG, DAILY
     Dates: start: 2012
  4. METFORMIN [Concomitant]
     Active Substance: METFORMIN HYDROCHLORIDE
     Indication: DIABETES MELLITUS
     Dosage: 500 MG, 2X/DAY
     Dates: start: 2012
  5. LISINOPRIL. [Concomitant]
     Active Substance: LISINOPRIL
     Indication: HYPERTENSION
     Dosage: 5 MG, DAILY
     Dates: start: 2012

REACTIONS (3)
  - Skin graft [Unknown]
  - Vision blurred [Unknown]
  - Dizziness [Not Recovered/Not Resolved]

NARRATIVE: CASE EVENT DATE: 20131107
